FAERS Safety Report 12853333 (Version 1)
Quarter: 2016Q4

REPORT INFORMATION
  Report Type: Spontaneous
  Country: US (occurrence: US)
  Receive Date: 20161017
  Receipt Date: 20161017
  Transmission Date: 20170207
  Serious: Yes (Other)
  Sender: FDA-Public Use
  Company Number: US-ELI_LILLY_AND_COMPANY-US201610002526

PATIENT
  Age: 75 Year
  Sex: Female

DRUGS (4)
  1. ADCIRCA [Suspect]
     Active Substance: TADALAFIL
     Indication: PRODUCT USED FOR UNKNOWN INDICATION
     Dosage: UNK, UNKNOWN
     Route: 065
     Dates: start: 201609
  2. AMBRISENTAN [Suspect]
     Active Substance: AMBRISENTAN
     Indication: PRODUCT USED FOR UNKNOWN INDICATION
     Dosage: 5 MG, QD
     Route: 065
     Dates: start: 20160908
  3. PREDNISONE. [Suspect]
     Active Substance: PREDNISONE
     Indication: PAIN IN EXTREMITY
     Dosage: UNK, BID
     Route: 065
     Dates: start: 201609
  4. VELETRI [Concomitant]
     Active Substance: EPOPROSTENOL
     Indication: PRODUCT USED FOR UNKNOWN INDICATION

REACTIONS (8)
  - Flushing [Not Recovered/Not Resolved]
  - Paraesthesia [Unknown]
  - Erythema [Not Recovered/Not Resolved]
  - Arthralgia [Not Recovered/Not Resolved]
  - Pain in extremity [Recovered/Resolved]
  - Nausea [Unknown]
  - Nail discolouration [Unknown]
  - Thrombosis [Unknown]

NARRATIVE: CASE EVENT DATE: 201609
